FAERS Safety Report 4689718-3 (Version None)
Quarter: 2005Q2

REPORT INFORMATION
  Report Type: 
  Country: None (occurrence: None)
  Receive Date: 20050608
  Receipt Date: 20041019
  Transmission Date: 20051028
  Serious: Yes (Other)
  Sender: FDA-Public Use
  Company Number: 383883

PATIENT
  Sex: 0

DRUGS (3)
  1. ACCUTANE [Suspect]
     Dates: start: 20030203, end: 20031015
  2. DEPO-PROVERA INJECTION (MEDROXYPROGESTERONE ACETATE) [Concomitant]
  3. UNKNOWN DRUG (GENERIC COMPONENT(S) UNKNOWN) [Concomitant]

REACTIONS (1)
  - ABORTION SPONTANEOUS [None]
